FAERS Safety Report 5886827-8 (Version None)
Quarter: 2008Q3

REPORT INFORMATION
  Report Type: 
  Country: None (occurrence: None)
  Receive Date: 20080917
  Receipt Date: 20080911
  Transmission Date: 20090109
  Serious: Yes (Hospitalization, Other)
  Sender: FDA-Public Use
  Company Number: FR-ABBOTT-08P-056-0475767-00

PATIENT
  Age: 50 Year
  Sex: Female

DRUGS (2)
  1. DEPAKOTE [Suspect]
     Indication: DRUG USE FOR UNKNOWN INDICATION
     Route: 048
  2. ZOLPIDEM [Suspect]
     Indication: DRUG USE FOR UNKNOWN INDICATION
     Route: 048

REACTIONS (13)
  - BICYTOPENIA [None]
  - BLOOD CREATINE PHOSPHOKINASE INCREASED [None]
  - BONE MARROW FAILURE [None]
  - COMA [None]
  - DRUG LEVEL INCREASED [None]
  - HAEMOPTYSIS [None]
  - HYPERAMMONAEMIA [None]
  - HYPERTHERMIA [None]
  - METABOLIC ACIDOSIS [None]
  - MULTIPLE DRUG OVERDOSE INTENTIONAL [None]
  - OBSTRUCTIVE AIRWAYS DISORDER [None]
  - RENAL FAILURE ACUTE [None]
  - WHITE BLOOD CELL COUNT DECREASED [None]
